FAERS Safety Report 8665531 (Version 2)
Quarter: 2012Q4

REPORT INFORMATION
  Report Type: Report from Study
  Country: DE (occurrence: GB)
  Receive Date: 20120716
  Receipt Date: 20120910
  Transmission Date: 20130627
  Serious: Yes (Hospitalization)
  Sender: FDA-Public Use
  Company Number: GB-BRISTOL-MYERS SQUIBB COMPANY-16760159

PATIENT
  Age: 73 Year
  Sex: Female
  Weight: 69 kg

DRUGS (6)
  1. CETUXIMAB [Suspect]
     Indication: OESOPHAGEAL CARCINOMA
     Dosage: last dose on 10Apr12
     Route: 042
     Dates: start: 20120228
  2. CISPLATIN FOR INJ [Suspect]
     Indication: OESOPHAGEAL CARCINOMA
     Dosage: last dose on 10Apr12 : 100mg
     Route: 042
     Dates: start: 20120228
  3. CAPECITABINE [Suspect]
     Indication: OESOPHAGEAL CARCINOMA
     Route: 048
     Dates: start: 20120228, end: 20120417
  4. LANSOPRAZOLE [Concomitant]
     Route: 048
  5. ONDANSETRON [Concomitant]
     Route: 048
  6. DOMPERIDONE [Concomitant]
     Route: 048

REACTIONS (2)
  - Colitis [Recovered/Resolved]
  - Diverticulitis [None]
